FAERS Safety Report 7121417-0 (Version None)
Quarter: 2010Q4

REPORT INFORMATION
  Report Type: 
  Country: None (occurrence: None)
  Receive Date: 20101124
  Receipt Date: 20101111
  Transmission Date: 20110411
  Serious: Yes (Other)
  Sender: FDA-Public Use
  Company Number: PHHY2010AT76489

PATIENT
  Age: 71 Year
  Sex: Male

DRUGS (3)
  1. DIOVAN TRIPLE DTR+TAB [Suspect]
     Dosage: 160/5/12.5 MG
     Dates: start: 20100510
  2. DIOVAN [Concomitant]
     Dosage: 160 MG
     Dates: start: 20100501
  3. DILATREND [Concomitant]
     Dosage: 12.5 MG
     Dates: start: 20100501

REACTIONS (2)
  - DYSPNOEA [None]
  - PULMONARY CONGESTION [None]
